FAERS Safety Report 6141771-6 (Version None)
Quarter: 2009Q2

REPORT INFORMATION
  Report Type: 
  Country: None (occurrence: None)
  Receive Date: 20090402
  Receipt Date: 20090306
  Transmission Date: 20091009
  Serious: No
  Sender: FDA-Public Use
  Company Number: US-ABBOTT-08P-163-0476513-00

PATIENT
  Sex: Female
  Weight: 59.02 kg

DRUGS (5)
  1. LUPRON DEPOT [Suspect]
     Indication: ENDOMETRIOSIS
     Route: 030
     Dates: start: 20080617
  2. LUPRON DEPOT [Suspect]
     Indication: HEADACHE
  3. NORETHINDRONE [Suspect]
     Indication: HORMONE REPLACEMENT THERAPY
     Dates: start: 20080617, end: 20080905
  4. CLARITIN [Concomitant]
     Indication: SEASONAL ALLERGY
  5. VITAMINS [Concomitant]
     Indication: DRUG USE FOR UNKNOWN INDICATION

REACTIONS (3)
  - AFFECTIVE DISORDER [None]
  - HOT FLUSH [None]
  - PAIN [None]
